FAERS Safety Report 9418418 (Version 1)
Quarter: 2013Q3

REPORT INFORMATION
  Report Type: Spontaneous
  Country: US (occurrence: US)
  Receive Date: 20130725
  Receipt Date: 20130725
  Transmission Date: 20140515
  Serious: Yes (Hospitalization)
  Sender: FDA-Public Use
  Company Number: US-BIOGENIDEC-2013BI066545

PATIENT
  Age: 52 Year
  Sex: Female

DRUGS (1)
  1. TECFIDERA [Suspect]
     Indication: MULTIPLE SCLEROSIS
     Route: 048
     Dates: start: 20130629, end: 20130706

REACTIONS (12)
  - Lip swelling [Not Recovered/Not Resolved]
  - Oedema mouth [Unknown]
  - Oesophageal oedema [Unknown]
  - Burning sensation [Unknown]
  - Migraine [Unknown]
  - Diarrhoea [Unknown]
  - Headache [Unknown]
  - Gastrointestinal disorder [Unknown]
  - Fatigue [Unknown]
  - Asthenia [Unknown]
  - Adverse reaction [Unknown]
  - Respiratory disorder [Recovered/Resolved]
